FAERS Safety Report 8291870-8 (Version None)
Quarter: 2012Q2

REPORT INFORMATION
  Report Type: 
  Country: None (occurrence: None)
  Receive Date: 20120417
  Receipt Date: 20110902
  Transmission Date: 20120825
  Serious: No
  Sender: FDA-Public Use
  Company Number: US-ASTRAZENECA-2011SE53513

PATIENT
  Sex: Female

DRUGS (13)
  1. CEFDINIR [Concomitant]
  2. ALPRAZOLAM [Concomitant]
  3. PENTAZOCINE AND NALOXONE HYDROCHLORIDES [Concomitant]
  4. FLUCONAZOLE [Concomitant]
  5. CIPROFLOXACIN [Concomitant]
  6. CYANOCOBALAM [Concomitant]
  7. VITAMIN D [Concomitant]
  8. METHYLPREDNISOLONE [Concomitant]
  9. DIFLUNISAL [Concomitant]
     Indication: PAIN
  10. LEVAQUIN [Concomitant]
  11. NEXIUM [Suspect]
     Route: 048
  12. DICYCLOMINE [Concomitant]
  13. DIAZEPAM [Concomitant]

REACTIONS (1)
  - EAR DISORDER [None]
